FAERS Safety Report 6501895-8 (Version None)
Quarter: 2009Q4

REPORT INFORMATION
  Report Type: 
  Country: None (occurrence: None)
  Receive Date: 20091216
  Receipt Date: 20091207
  Transmission Date: 20100525
  Serious: Yes (Other)
  Sender: FDA-Public Use
  Company Number: PHHY2009GB54979

PATIENT
  Age: 52 Year
  Sex: Male
  Weight: 85 kg

DRUGS (2)
  1. TEGRETOL [Suspect]
     Indication: BIPOLAR DISORDER
     Dosage: 300MG, UNK
     Route: 048
     Dates: start: 19980601, end: 20090418
  2. DILTIAZEM HYDROCHLORIDE [Concomitant]

REACTIONS (1)
  - BRADYCARDIA [None]
